FAERS Safety Report 25184825 (Version 2)
Quarter: 2025Q2

REPORT INFORMATION
  Report Type: Spontaneous
  Country: US (occurrence: US)
  Receive Date: 20250410
  Receipt Date: 20250513
  Transmission Date: 20250717
  Serious: No
  Sender: PFIZER
  Company Number: US-PFIZER INC-202500073995

PATIENT
  Age: 9 Year
  Sex: Female
  Weight: 23.9 kg

DRUGS (1)
  1. GENOTROPIN [Suspect]
     Active Substance: SOMATROPIN
     Indication: Growth hormone deficiency
     Dosage: 1 MG/DAY 7 DAYS/WK
     Route: 058
     Dates: start: 202410

REACTIONS (1)
  - Drug effect less than expected [Unknown]
